FAERS Safety Report 8439702-9 (Version None)
Quarter: 2012Q2

REPORT INFORMATION
  Report Type: 
  Country: None (occurrence: None)
  Receive Date: 20120323
  Receipt Date: 20111108
  Transmission Date: 20120825
  Serious: Yes (Hospitalization, Other)
  Sender: FDA-Public Use
  Company Number: 163-21880-11053821

PATIENT
  Age: 72 Year
  Sex: Female

DRUGS (15)
  1. THYROID (THYROID)(UNKNOWN) [Concomitant]
  2. MULTIVIT (MULTIVIT)(UNKNOWN) [Concomitant]
  3. QUESTRAN (COLESTYRAMINE)(UNKNOWN) [Concomitant]
  4. Z-PACK (UNKNOWN) [Concomitant]
  5. REVLIMID [Suspect]
     Indication: MULTIPLE MYELOMA
     Dosage: 25 MG, DAILY X 21 DAYS, PO,
     Route: 048
     Dates: start: 20090702, end: 20110705
  6. ASPIRIN [Concomitant]
  7. CALCIUM (CALCIUM)(UNKNOWN) [Concomitant]
  8. COUMADIN [Concomitant]
  9. VOLTAREN (DICLOFENAC SODIUM)(GEL) [Concomitant]
  10. EXALON (RIVASTIGMINE TARTRATE)(POULTICE OR PATCH) [Concomitant]
  11. DECADRON [Concomitant]
  12. VITAMIN D (ERGOCALCIFEROL)(UNKNOWN) [Concomitant]
  13. BLOOD (BLOOD AND RELATED PRODUCTS)(UNKNOWN) [Concomitant]
  14. MAGNESIUM (MAGNESIUM)(POULTICE OR PATCH) [Concomitant]
  15. BENICAR (OLMESARTAN MEDOXOMIL)(UNKNOWN) [Concomitant]

REACTIONS (5)
  - FEMUR FRACTURE [None]
  - BONE LESION [None]
  - BLOOD IMMUNOGLOBULIN A INCREASED [None]
  - FALL [None]
  - DIARRHOEA [None]
